FAERS Safety Report 9964070 (Version 2)
Quarter: 2014Q1

REPORT INFORMATION
  Report Type: Spontaneous
  Country: JP (occurrence: JP)
  Receive Date: 20140305
  Receipt Date: 20140317
  Transmission Date: 20141002
  Serious: Yes (Hospitalization)
  Sender: FDA-Public Use
  Company Number: JP-GLAXOSMITHKLINE-B0973850A

PATIENT
  Age: 9 Year
  Sex: Female

DRUGS (4)
  1. RELENZA [Suspect]
     Indication: INFLUENZA
     Dosage: 10MG TWICE PER DAY
     Route: 055
     Dates: start: 20140225, end: 20140227
  2. MEPTIN [Concomitant]
     Route: 048
     Dates: start: 20140225, end: 20140227
  3. MUCODYNE [Concomitant]
     Route: 048
     Dates: start: 20140225, end: 20140227
  4. TELGIN G [Concomitant]
     Route: 048
     Dates: start: 20140225, end: 20140227

REACTIONS (7)
  - Altered state of consciousness [Recovering/Resolving]
  - Coordination abnormal [Recovering/Resolving]
  - Muscular weakness [Recovering/Resolving]
  - Musculoskeletal stiffness [Recovering/Resolving]
  - Vision blurred [Recovering/Resolving]
  - Sensory disturbance [Recovering/Resolving]
  - Feeling abnormal [Recovering/Resolving]
